FAERS Safety Report 15533906 (Version 2)
Quarter: 2018Q4

REPORT INFORMATION
  Report Type: Report from Study
  Country: CA (occurrence: CA)
  Receive Date: 20181019
  Receipt Date: 20181031
  Transmission Date: 20190205
  Serious: Yes (Death, Hospitalization)
  Sender: FDA-Public Use
  Company Number: CA-BAYER-2018-183301

PATIENT
  Age: 85 Year
  Sex: Male

DRUGS (1)
  1. STIVARGA [Suspect]
     Active Substance: REGORAFENIB
     Indication: GASTROINTESTINAL STROMAL TUMOUR
     Dosage: 160 MG, QD
     Route: 048
     Dates: start: 201809

REACTIONS (11)
  - Lethargy [Not Recovered/Not Resolved]
  - Asthenia [None]
  - Death [Fatal]
  - Dysphonia [Not Recovered/Not Resolved]
  - Gait disturbance [Not Recovered/Not Resolved]
  - Aphonia [None]
  - Pain [Unknown]
  - Fatigue [None]
  - Tumour pain [Unknown]
  - Fatigue [Not Recovered/Not Resolved]
  - Disorientation [None]

NARRATIVE: CASE EVENT DATE: 201809
